FAERS Safety Report 9154778 (Version 1)
Quarter: 2013Q1

REPORT INFORMATION
  Report Type: Spontaneous
  Country: CL (occurrence: CL)
  Receive Date: 20130311
  Receipt Date: 20130311
  Transmission Date: 20140127
  Serious: Yes (Hospitalization, Other)
  Sender: FDA-Public Use
  Company Number: CL-PFIZER INC-2013079017

PATIENT
  Age: 39 Year
  Sex: Female

DRUGS (1)
  1. CYTOTEC [Suspect]
     Dosage: UNK
     Route: 067
     Dates: start: 20121127, end: 20121127

REACTIONS (6)
  - Off label use [Recovered/Resolved]
  - Postpartum haemorrhage [Recovered/Resolved]
  - Uterine hypotonus [Recovered/Resolved]
  - Uterine hypertonus [Recovered/Resolved]
  - Anaemia [Unknown]
  - Headache [Unknown]
